FAERS Safety Report 25991252 (Version 1)
Quarter: 2025Q4

REPORT INFORMATION
  Report Type: Spontaneous
  Country: MX (occurrence: MX)
  Receive Date: 20251103
  Receipt Date: 20251103
  Transmission Date: 20260117
  Serious: Yes (Hospitalization, Other)
  Sender: SANDOZ
  Company Number: MX-002147023-NVSC2025MX121183

PATIENT
  Age: 52 Year
  Sex: Female
  Weight: 68.99 kg

DRUGS (15)
  1. FULVESTRANT [Suspect]
     Active Substance: FULVESTRANT
     Indication: Breast cancer
     Dosage: 2 DOSAGE FORM, QMO
     Route: 030
     Dates: start: 202305, end: 20250811
  2. KISQALI [Suspect]
     Active Substance: RIBOCICLIB SUCCINATE
     Dosage: 3 DOSAGE FORM OF 200 MG, QD
     Route: 048
     Dates: start: 202305
  3. KISQALI [Suspect]
     Active Substance: RIBOCICLIB SUCCINATE
     Dosage: 3 DOSAGE FORM, QD
     Route: 048
  4. KISQALI [Suspect]
     Active Substance: RIBOCICLIB SUCCINATE
     Dosage: 600 MG, QD (3 TIMES 200 MG) (DAILY / ONCE A DAY/ FOR 21 DAYS)
     Route: 048
     Dates: start: 20240320
  5. KISQALI [Suspect]
     Active Substance: RIBOCICLIB SUCCINATE
     Dosage: 600 MG, QD (3 TIMES 200 MG)
     Route: 048
  6. KISQALI [Suspect]
     Active Substance: RIBOCICLIB SUCCINATE
     Dosage: 3 DOSAGE FORM, QD
     Route: 048
  7. KISQALI [Suspect]
     Active Substance: RIBOCICLIB SUCCINATE
     Dosage: 3 DOSAGE FORM, QD (200 MG)
     Route: 048
  8. KISQALI [Suspect]
     Active Substance: RIBOCICLIB SUCCINATE
     Indication: Breast cancer
     Dosage: 3 DOSAGE FORM, QD
     Route: 048
     Dates: start: 202204
  9. KISQALI [Suspect]
     Active Substance: RIBOCICLIB SUCCINATE
     Dosage: 3 DOSAGE FORM, QD (OF 200 MG)
     Route: 048
     Dates: start: 20250811
  10. ZOLEDRONIC ACID [Suspect]
     Active Substance: ZOLEDRONIC ACID
     Indication: Metastases to bone
     Dosage: 1 DOSAGE FORM, QMO
     Route: 042
     Dates: start: 202305, end: 20250326
  11. ZOLEDRONIC ACID [Suspect]
     Active Substance: ZOLEDRONIC ACID
     Dosage: 1 DF, Q3MO
     Route: 042
     Dates: start: 20250326
  12. ZOLEDRONIC ACID [Suspect]
     Active Substance: ZOLEDRONIC ACID
     Dosage: 1 DOSAGE FORM, Q3MO
     Route: 042
     Dates: start: 202506, end: 202509
  13. METFORMIN HYDROCHLORIDE [Concomitant]
     Active Substance: METFORMIN HYDROCHLORIDE
     Indication: Diabetes mellitus
     Dosage: 1 DOSAGE FORM, Q12H (1 OF 850 MG) (TABLET)
     Route: 048
     Dates: start: 202104
  14. METFORMIN HYDROCHLORIDE [Concomitant]
     Active Substance: METFORMIN HYDROCHLORIDE
     Dosage: UNK, BID (IN THE MORNING AND IN THE AFTERNOON)
     Route: 048
     Dates: start: 202204
  15. TELMISARTAN [Concomitant]
     Active Substance: TELMISARTAN
     Indication: Hypertension
     Dosage: 1 DOSAGE FORM, Q12H (1 OF 40 MG) (TABLET)
     Route: 048
     Dates: start: 202104

REACTIONS (54)
  - Vomiting [Not Recovered/Not Resolved]
  - Jaw disorder [Unknown]
  - Feeding disorder [Unknown]
  - Anaemia [Recovering/Resolving]
  - Vertigo [Recovered/Resolved]
  - Urinary tract infection [Recovered/Resolved]
  - Hypoaesthesia [Recovered/Resolved]
  - Dehydration [Recovered/Resolved]
  - Breast cancer [Not Recovered/Not Resolved]
  - Malignant neoplasm progression [Not Recovered/Not Resolved]
  - Metastases to bone [Not Recovered/Not Resolved]
  - Metastases to lung [Not Recovered/Not Resolved]
  - Metastases to liver [Not Recovered/Not Resolved]
  - Decreased interest [Not Recovered/Not Resolved]
  - Malaise [Unknown]
  - Dizziness [Unknown]
  - Nausea [Recovering/Resolving]
  - Insomnia [Recovering/Resolving]
  - Abdominal discomfort [Recovering/Resolving]
  - Pain in extremity [Recovering/Resolving]
  - Pulmonary pain [Recovering/Resolving]
  - Headache [Recovering/Resolving]
  - Arthralgia [Recovering/Resolving]
  - Dyspepsia [Recovering/Resolving]
  - Depression [Recovering/Resolving]
  - Weight decreased [Recovered/Resolved]
  - Anger [Recovered/Resolved]
  - Decreased appetite [Recovered/Resolved]
  - Pain [Recovered/Resolved]
  - Ligament sprain [Recovered/Resolved]
  - Joint injury [Recovered/Resolved]
  - Depressed mood [Recovered/Resolved]
  - Influenza [Recovered/Resolved]
  - Vomiting [Recovered/Resolved]
  - Dysuria [Recovered/Resolved]
  - Cough [Recovered/Resolved]
  - Urinary tract infection [Recovered/Resolved]
  - Peripheral swelling [Recovered/Resolved]
  - Muscle spasms [Unknown]
  - Malnutrition [Unknown]
  - Nasopharyngitis [Unknown]
  - Asthenia [Unknown]
  - Pollakiuria [Unknown]
  - Crying [Recovering/Resolving]
  - Dysgeusia [Recovering/Resolving]
  - Fall [Recovered/Resolved]
  - Wound [Recovered/Resolved]
  - Underweight [Recovered/Resolved]
  - Chills [Recovered/Resolved]
  - Increased appetite [Recovered/Resolved]
  - Weight increased [Recovered/Resolved]
  - Weight increased [Recovered/Resolved]
  - Euphoric mood [Recovered/Resolved]
  - Off label use [Unknown]

NARRATIVE: CASE EVENT DATE: 20240320
